FAERS Safety Report 9675514 (Version 1)
Quarter: 2013Q4

REPORT INFORMATION
  Report Type: Spontaneous
  Country: US (occurrence: US)
  Receive Date: 20131107
  Receipt Date: 20131107
  Transmission Date: 20140711
  Serious: Yes (Other)
  Sender: FDA-Public Use
  Company Number: US-MYLANLABS-2013S1024377

PATIENT
  Age: 8 Year
  Sex: Male
  Weight: 27 kg

DRUGS (1)
  1. LITHIUM [Suspect]
     Indication: OPPOSITIONAL DEFIANT DISORDER
     Dosage: 600MG QAM AND 900MG QPM
     Route: 065

REACTIONS (6)
  - Nephrogenic diabetes insipidus [Recovering/Resolving]
  - Renal failure acute [Recovering/Resolving]
  - Toxicity to various agents [Recovering/Resolving]
  - Overdose [Recovering/Resolving]
  - Confusional state [Recovering/Resolving]
  - Ataxia [Recovering/Resolving]
